FAERS Safety Report 6885366-5 (Version None)
Quarter: 2010Q3

REPORT INFORMATION
  Report Type: 
  Country: None (occurrence: None)
  Receive Date: 20100729
  Receipt Date: 20080116
  Transmission Date: 20110219
  Serious: No
  Sender: FDA-Public Use
  Company Number: US-PFIZER INC-2008005852

PATIENT
  Sex: Female
  Weight: 26.8 kg

DRUGS (6)
  1. CELEBREX [Suspect]
  2. CEFALEXIN [Suspect]
     Indication: ORTHODONTIC PROCEDURE
     Dates: start: 20071231, end: 20080110
  3. VITAMINS WITH MINERALS [Suspect]
     Dates: start: 20071228
  4. PREMARIN [Concomitant]
  5. MIRALAX [Concomitant]
  6. METHADONE HCL [Concomitant]
     Indication: RESTLESS LEGS SYNDROME

REACTIONS (7)
  - BLOOD GLUCOSE DECREASED [None]
  - FEELING COLD [None]
  - HUNGER [None]
  - INTENTIONAL DRUG MISUSE [None]
  - MUSCULAR WEAKNESS [None]
  - PYREXIA [None]
  - TREMOR [None]
